FAERS Safety Report 11204695 (Version 1)
Quarter: 2015Q2

REPORT INFORMATION
  Report Type: Spontaneous
  Country: US (occurrence: US)
  Receive Date: 20150622
  Receipt Date: 20150622
  Transmission Date: 20150821
  Serious: No
  Sender: FDA-Public Use
  Company Number: US-009507513-1506USA007972

PATIENT
  Age: 26 Year
  Sex: Female

DRUGS (5)
  1. METHYLPREDNISOLONE SODIUM SUCCINATE. [Suspect]
     Active Substance: METHYLPREDNISOLONE SODIUM SUCCINATE
     Indication: ENCEPHALITIS AUTOIMMUNE
     Dosage: 1 G, UNK
     Route: 042
  2. PREDNISONE. [Suspect]
     Active Substance: PREDNISONE
     Indication: ENCEPHALITIS AUTOIMMUNE
     Dosage: 60 MG, UNK
     Route: 048
  3. PREDNISONE. [Suspect]
     Active Substance: PREDNISONE
     Dosage: TAPERED OVER THE NEXT 6 DAYS (40 MG FOR 2 DAYS, 20 MG FOR 2 DAYS, 10 MG FOR 2 DAYS AND THEN DISCONTI
     Route: 048
  4. PREDNISONE. [Suspect]
     Active Substance: PREDNISONE
     Dosage: TAPERED OVER THE NEXT 6 DAYS (40 MG FOR 2 DAYS, 20 MG FOR 2 DAYS, 10 MG FOR 2 DAYS AND THEN DISCONTI
     Route: 048
  5. PREDNISONE. [Suspect]
     Active Substance: PREDNISONE
     Dosage: TAPERED OVER THE NEXT 6 DAYS (40 MG FOR 2 DAYS, 20 MG FOR 2 DAYS, 10 MG FOR 2 DAYS AND THEN DISCONTI
     Route: 048

REACTIONS (2)
  - Drug ineffective [Unknown]
  - Maternal exposure during pregnancy [Recovered/Resolved]
